FAERS Safety Report 4980979-X (Version None)
Quarter: 2006Q2

REPORT INFORMATION
  Report Type: 
  Country: None (occurrence: None)
  Receive Date: 20060418
  Receipt Date: 20060327
  Transmission Date: 20061013
  Serious: Yes (Disabling, Other)
  Sender: FDA-Public Use
  Company Number: USA020211418

PATIENT
  Age: 74 Year
  Sex: Female
  Weight: 125 kg

DRUGS (7)
  1. HUMALOG MIX 75/25 [Suspect]
     Indication: DIABETES MELLITUS
     Dosage: 50 U, DAILY (1/D), SUBCUTANEOUS
     Route: 058
     Dates: start: 20011001
  2. HUMULIN(HUMAN INSULIN (RDNA ORIGIN) 30% [Suspect]
     Dosage: SUBCUTANEOUS
     Route: 058
     Dates: start: 20010901
  3. HUMULIN(HUMAN INSULIN (RDNA ORIGIN) [Suspect]
     Indication: DIABETES MELLITUS
     Dates: end: 20010101
  4. HUMALOG MIX75/25 PEN (HUMALOG MIX 25L/75NPL PEN) PEN,DISPOSABLE [Concomitant]
  5. HUMULIN 70/30 PEN) (HUMULIN 70/30 PEN) PEN, DISPOSABLE [Concomitant]
  6. HUMALOG MIX75/25 PEN (HUMALOG MIX 25L/75NPL PEN) PEN,DISPOSABLE [Concomitant]
  7. HUMALOG MIX 25L/75NPL (HUMALOG MIX 25L/75NPL PEN) PEN,DISPOSABLE [Concomitant]

REACTIONS (15)
  - ARTHRITIS [None]
  - BLINDNESS UNILATERAL [None]
  - BLOOD GLUCOSE INCREASED [None]
  - CATARACT [None]
  - DEVICE FAILURE [None]
  - DRUG ADMINISTERED AT INAPPROPRIATE SITE [None]
  - DYSSTASIA [None]
  - INJECTION SITE HAEMORRHAGE [None]
  - MACULAR DEGENERATION [None]
  - MEDICAL DEVICE COMPLICATION [None]
  - PAIN [None]
  - PHARMACEUTICAL PRODUCT COMPLAINT [None]
  - VERTIGO [None]
  - VISION BLURRED [None]
  - VISUAL ACUITY REDUCED [None]
